FAERS Safety Report 16162750 (Version 1)
Quarter: 2019Q2

REPORT INFORMATION
  Report Type: Spontaneous
  Country: US (occurrence: US)
  Receive Date: 20190304
  Receipt Date: 20190304
  Transmission Date: 20190711
  Serious: Yes (Death)
  Sender: FDA-Public Use
  Company Number: None

PATIENT
  Age: 73 Year
  Sex: Male
  Weight: 77.11 kg

DRUGS (5)
  1. ASACOL [Concomitant]
     Active Substance: MESALAMINE
  2. COZAAR [Suspect]
     Active Substance: LOSARTAN POTASSIUM
     Indication: HYPERTENSION
     Dosage: ?          QUANTITY:100 MG MILLIGRAM(S);?
     Route: 048
     Dates: start: 20130222, end: 20180820
  3. AZATHIOPRINE. [Concomitant]
     Active Substance: AZATHIOPRINE
  4. COZAAR [Concomitant]
     Active Substance: LOSARTAN POTASSIUM
  5. METAMUCIL [Concomitant]
     Active Substance: PLANTAGO SEED

REACTIONS (2)
  - Pancreatic carcinoma [None]
  - Hepatic cancer [None]

NARRATIVE: CASE EVENT DATE: 20180527
